FAERS Safety Report 15363113 (Version 5)
Quarter: 2018Q4

REPORT INFORMATION
  Report Type: Spontaneous
  Country: HU (occurrence: HU)
  Receive Date: 20180907
  Receipt Date: 20181102
  Transmission Date: 20190204
  Serious: No
  Sender: FDA-Public Use
  Company Number: HU-PFIZER INC-2018359838

PATIENT
  Sex: Female
  Weight: 3.2 kg

DRUGS (22)
  1. PANTOPRAZOLE [Suspect]
     Active Substance: PANTOPRAZOLE
     Indication: PREMEDICATION
     Dosage: 40 MG, UNK
     Route: 064
  2. ISOFLURANE. [Concomitant]
     Active Substance: ISOFLURANE
     Dosage: UNK (0.5-1.0%)
     Route: 064
  3. PROPYLTHIOURACIL. [Concomitant]
     Active Substance: PROPYLTHIOURACIL
     Indication: THYROID CYST
     Dosage: UNK
     Route: 064
  4. PROPOFOL. [Suspect]
     Active Substance: PROPOFOL
     Dosage: UNK (2.0-1.5 U/ML)
     Route: 064
  5. HEPARIN [Suspect]
     Active Substance: HEPARIN SODIUM
     Dosage: 20 IU, UNK
     Route: 064
  6. SEVOFLURANE. [Concomitant]
     Active Substance: SEVOFLURANE
     Dosage: UNK ((1-5-2.0%)
     Route: 064
  7. PROPYLTHIOURACIL. [Concomitant]
     Active Substance: PROPYLTHIOURACIL
     Indication: HYPERTHYROIDISM
  8. PIPECURONIUM BROMIDE. [Suspect]
     Active Substance: PIPECURONIUM BROMIDE
     Dosage: 4 MG, UNK
     Route: 064
  9. MIDAZOLAM [Suspect]
     Active Substance: MIDAZOLAM HYDROCHLORIDE
     Indication: PREMEDICATION
     Dosage: 7.5 MG, UNK
     Route: 064
  10. PROTAMINE SULFATE. [Suspect]
     Active Substance: PROTAMINE SULFATE
     Dosage: 200 MG, UNK
     Route: 064
  11. MAGNESIUM SULFATE. [Suspect]
     Active Substance: MAGNESIUM SULFATE
     Dosage: 1 G, UNK
     Route: 064
  12. EPHEDRINE. [Suspect]
     Active Substance: EPHEDRINE
     Dosage: UNK (CONTINUAL INFUSION OF EPHEDRINE (25 MG/H)
     Route: 064
  13. PENAMECILLIN [Suspect]
     Active Substance: PENAMECILLIN
     Indication: STREPTOCOCCAL INFECTION
     Dosage: UNK
     Route: 064
  14. MIDAZOLAM [Suspect]
     Active Substance: MIDAZOLAM HYDROCHLORIDE
     Dosage: 5 MG, UNK
     Route: 064
  15. AMPICILLIN [Suspect]
     Active Substance: AMPICILLIN
     Dosage: 2 G, EVERY 4 HRS
     Route: 064
  16. HEPARIN [Suspect]
     Active Substance: HEPARIN SODIUM
     Dosage: 10 IU, UNK
     Route: 064
  17. PROPOFOL. [Suspect]
     Active Substance: PROPOFOL
     Dosage: 2 IU/ML, UNK ((PLASMA TARGET CONCENTRATION LED INFUSION)
     Route: 064
  18. DIGOXIN. [Suspect]
     Active Substance: DIGOXIN
     Dosage: UNK
     Route: 064
  19. ENOXAPARIN SODIUM. [Suspect]
     Active Substance: ENOXAPARIN SODIUM
     Dosage: UNK
     Route: 064
  20. METOPROLOL. [Suspect]
     Active Substance: METOPROLOL
     Indication: SINUS TACHYCARDIA
     Dosage: UNK
     Route: 064
  21. SUFENTANIL [Suspect]
     Active Substance: SUFENTANIL
     Dosage: 10 UG, UNK
     Route: 064
  22. EPHEDRINE. [Suspect]
     Active Substance: EPHEDRINE
     Dosage: 5 MG, 3X/DAY
     Route: 064

REACTIONS (1)
  - Foetal exposure during pregnancy [Unknown]
